FAERS Safety Report 7103407-7 (Version None)
Quarter: 2010Q4

REPORT INFORMATION
  Report Type: 
  Country: None (occurrence: None)
  Receive Date: 20101115
  Receipt Date: 20101105
  Transmission Date: 20110411
  Serious: Yes (Other)
  Sender: FDA-Public Use
  Company Number: US-BAYER-201040221NA

PATIENT
  Age: 68 Year
  Sex: Male

DRUGS (1)
  1. MAGNEVIST [Suspect]
     Indication: NUCLEAR MAGNETIC RESONANCE IMAGING BRAIN
     Dates: start: 20101001, end: 20101001

REACTIONS (2)
  - INJECTION SITE REACTION [None]
  - THROMBOPHLEBITIS SUPERFICIAL [None]
